FAERS Safety Report 9937085 (Version 2)
Quarter: 2014Q2

REPORT INFORMATION
  Report Type: Report from Study
  Country: CO (occurrence: CO)
  Receive Date: 20140301
  Receipt Date: 20140401
  Transmission Date: 20141212
  Serious: Yes (Other)
  Sender: FDA-Public Use
  Company Number: CO-ROCHE-1356303

PATIENT
  Sex: Female
  Weight: 60 kg

DRUGS (4)
  1. RANIBIZUMAB [Suspect]
     Indication: MACULAR DEGENERATION
     Route: 050
     Dates: start: 201311
  2. RANIBIZUMAB [Suspect]
     Route: 050
     Dates: start: 201402
  3. LOSARTAN [Concomitant]
  4. METHOTREXATE [Concomitant]

REACTIONS (2)
  - Blindness [Unknown]
  - Visual impairment [Not Recovered/Not Resolved]
